FAERS Safety Report 17634098 (Version 1)
Quarter: 2020Q2

REPORT INFORMATION
  Report Type: Spontaneous
  Country: US (occurrence: US)
  Receive Date: 20200406
  Receipt Date: 20200406
  Transmission Date: 20200713
  Serious: Yes (Hospitalization)
  Sender: FDA-Public Use
  Company Number: US-SAOL THERAPEUTICS-2020SAO00095

PATIENT
  Age: 2 Year
  Sex: Female
  Weight: 11.9 kg

DRUGS (1)
  1. BACLOFEN. [Suspect]
     Active Substance: BACLOFEN
     Dosage: 20 MG, ONCE
     Route: 048

REACTIONS (7)
  - Hypotonia [Recovered/Resolved]
  - Encephalopathy [Recovered/Resolved]
  - Accidental overdose [Recovered/Resolved]
  - Sinus bradycardia [Recovered/Resolved]
  - Coma [Recovered/Resolved]
  - Respiratory failure [Recovered/Resolved]
  - Areflexia [Recovered/Resolved]
